FAERS Safety Report 5709400-0 (Version None)
Quarter: 2008Q2

REPORT INFORMATION
  Report Type: 
  Country: None (occurrence: None)
  Receive Date: 20080418
  Receipt Date: 20080411
  Transmission Date: 20081010
  Serious: Yes (Death)
  Sender: FDA-Public Use
  Company Number: BR-ABBOTT-08P-020-0444166-01

PATIENT
  Sex: Female

DRUGS (6)
  1. RITONAVIR SOFT GELATIN CAPSULES [Suspect]
     Indication: HIV INFECTION
     Route: 048
     Dates: start: 20060127
  2. TIPRANAVIR [Concomitant]
     Indication: HIV INFECTION
     Route: 048
     Dates: start: 20060127, end: 20080302
  3. LAMIVUDINE + ZIDOVUDINE [Concomitant]
     Indication: HIV INFECTION
     Route: 048
     Dates: start: 20060508, end: 20080302
  4. TENOFOVIR DISOPROXIL FUMARATE [Concomitant]
     Indication: HIV INFECTION
     Route: 048
     Dates: start: 20070507, end: 20080301
  5. SULFAMETHOXAZOLE [Concomitant]
     Indication: ANTIFUNGAL PROPHYLAXIS
     Route: 048
     Dates: start: 20070508, end: 20080301
  6. TRIMETHOPRIM [Concomitant]
     Indication: ANTIFUNGAL PROPHYLAXIS
     Route: 048
     Dates: start: 20070508, end: 20080301

REACTIONS (1)
  - ACQUIRED IMMUNODEFICIENCY SYNDROME [None]
